FAERS Safety Report 10855164 (Version 1)
Quarter: 2015Q1

REPORT INFORMATION
  Report Type: Spontaneous
  Country: US (occurrence: None)
  Receive Date: 20150218
  Receipt Date: 20150218
  Transmission Date: 20150721
  Serious: No
  Sender: FDA-Public Use
  Company Number: None

PATIENT
  Age: 69 Year
  Sex: Male
  Weight: 104.33 kg

DRUGS (1)
  1. SPIRONOLACTONE. [Suspect]
     Active Substance: SPIRONOLACTONE
     Indication: BLOOD PRESSURE
     Dosage: ONE PER DAY
     Route: 048
     Dates: start: 20150205, end: 20150215

REACTIONS (4)
  - Dyspnoea [None]
  - Thinking abnormal [None]
  - Fatigue [None]
  - Disorientation [None]

NARRATIVE: CASE EVENT DATE: 20150205
